FAERS Safety Report 5488358-6 (Version None)
Quarter: 2007Q4

REPORT INFORMATION
  Report Type: 
  Country: None (occurrence: None)
  Receive Date: 20071017
  Receipt Date: 20071015
  Transmission Date: 20080405
  Serious: Yes (Life-Threatening)
  Sender: FDA-Public Use
  Company Number: B0489044A

PATIENT
  Age: 78 Year
  Sex: Male
  Weight: 55 kg

DRUGS (6)
  1. ARIXTRA [Suspect]
     Dosage: 2.5MG PER DAY
     Route: 058
     Dates: start: 20070916, end: 20070917
  2. SERMION [Concomitant]
     Indication: DEMENTIA
     Route: 048
  3. MAGMITT [Concomitant]
     Indication: CONSTIPATION
     Route: 048
  4. RISPERDAL [Concomitant]
     Indication: DEMENTIA
     Dosage: 3ML PER DAY
     Route: 048
  5. ARICEPT [Concomitant]
     Indication: DEMENTIA
     Route: 048
  6. THROMBIN LOCAL SOLUTION [Concomitant]

REACTIONS (2)
  - GASTRIC ULCER HAEMORRHAGE [None]
  - HAEMATEMESIS [None]
